FAERS Safety Report 5412574-2 (Version None)
Quarter: 2007Q3

REPORT INFORMATION
  Report Type: 
  Country: None (occurrence: None)
  Receive Date: 20070809
  Receipt Date: 20070726
  Transmission Date: 20080115
  Serious: Yes (Other)
  Sender: FDA-Public Use
  Company Number: B0480501A

PATIENT
  Age: 59 Year
  Sex: Female

DRUGS (1)
  1. MELPHALAN UNSPECIFIED INJECTABLE(GENERIC) (MELPHALAN) [Suspect]
     Indication: ACUTE LEUKAEMIA
     Dosage: 200 MG/M2/ SINGLE DOSE/ INTRAVENOUS
     Route: 042
     Dates: start: 20040101

REACTIONS (4)
  - APLASIA [None]
  - HAEMODIALYSIS [None]
  - RENAL FAILURE ACUTE [None]
  - TUMOUR LYSIS SYNDROME [None]
